FAERS Safety Report 11197766 (Version 1)
Quarter: 2015Q2

REPORT INFORMATION
  Report Type: Spontaneous
  Country: US (occurrence: US)
  Receive Date: 20150617
  Receipt Date: 20150617
  Transmission Date: 20150821
  Serious: Yes (Hospitalization, Other)
  Sender: FDA-Public Use
  Company Number: US-GILEAD-2015-0158698

PATIENT
  Age: 59 Year
  Sex: Male

DRUGS (14)
  1. METFORMIN [Concomitant]
     Active Substance: METFORMIN HYDROCHLORIDE
  2. NITROGLYCERIN. [Concomitant]
     Active Substance: NITROGLYCERIN
  3. ASPIRIN                            /00002701/ [Concomitant]
     Active Substance: ASPIRIN
  4. HARVONI [Suspect]
     Active Substance: LEDIPASVIR\SOFOSBUVIR
     Indication: CHRONIC HEPATITIS C
     Dosage: UNK
     Route: 065
     Dates: start: 20150301
  5. SPIRONOLACTONE. [Concomitant]
     Active Substance: SPIRONOLACTONE
  6. FOLIC ACID. [Concomitant]
     Active Substance: FOLIC ACID
  7. TOPROL XL [Concomitant]
     Active Substance: METOPROLOL SUCCINATE
  8. EFFIENT [Concomitant]
     Active Substance: PRASUGREL HYDROCHLORIDE
  9. LOSARTAN [Concomitant]
     Active Substance: LOSARTAN
  10. INSULIN [Concomitant]
     Active Substance: INSULIN NOS
  11. FUROSEMIDE. [Concomitant]
     Active Substance: FUROSEMIDE
  12. VICTOZA [Concomitant]
     Active Substance: LIRAGLUTIDE
  13. NEXIUM [Concomitant]
     Active Substance: ESOMEPRAZOLE MAGNESIUM
  14. NORVASC [Concomitant]
     Active Substance: AMLODIPINE BESYLATE

REACTIONS (2)
  - Blood creatinine increased [Unknown]
  - Gastrointestinal haemorrhage [Unknown]

NARRATIVE: CASE EVENT DATE: 20150610
